FAERS Safety Report 7507075-1 (Version None)
Quarter: 2011Q2

REPORT INFORMATION
  Report Type: 
  Country: None (occurrence: None)
  Receive Date: 20110526
  Receipt Date: 20100517
  Transmission Date: 20111010
  Serious: No
  Sender: FDA-Public Use
  Company Number: US-MYLANLABS-2010S1008741

PATIENT
  Age: 71 Year
  Sex: Female

DRUGS (2)
  1. VERAPAMIL HYDROCHLORIDE [Suspect]
     Indication: HEART RATE IRREGULAR
     Route: 048
     Dates: start: 20100515
  2. METOPROLOL SUCCINATE [Concomitant]
     Indication: BLOOD PRESSURE INCREASED
     Route: 048

REACTIONS (4)
  - DRUG EFFECT DECREASED [None]
  - DYSPEPSIA [None]
  - HEART RATE IRREGULAR [None]
  - FLATULENCE [None]
